FAERS Safety Report 4774941-X (Version None)
Quarter: 2005Q3

REPORT INFORMATION
  Report Type: 
  Country: None (occurrence: None)
  Receive Date: 20050920
  Receipt Date: 20050908
  Transmission Date: 20060218
  Serious: Yes (Hospitalization)
  Sender: FDA-Public Use
  Company Number: 2005125905

PATIENT
  Sex: Female

DRUGS (2)
  1. CARDURA XL [Suspect]
     Indication: ILL-DEFINED DISORDER
     Dosage: 4 MG (4 MG, INTERVAL:EVERY DAY), ORAL
     Route: 048
  2. THIAZIDE (THIAZIDES) [Concomitant]

REACTIONS (1)
  - HYPOGLYCAEMIA [None]
